FAERS Safety Report 6731361-6 (Version None)
Quarter: 2010Q2

REPORT INFORMATION
  Report Type: 
  Country: None (occurrence: None)
  Receive Date: 20100517
  Receipt Date: 20100517
  Transmission Date: 20101027
  Serious: Yes (Life-Threatening, Other)
  Sender: FDA-Public Use
  Company Number: None

PATIENT
  Age: 59 Year
  Sex: Male
  Weight: 108.8633 kg

DRUGS (1)
  1. HUMIRA [Suspect]
     Indication: PSORIASIS
     Dosage: 2 SUBCONJUNCTIVAL
     Route: 057
     Dates: start: 20030603, end: 20030908

REACTIONS (4)
  - CELLULITIS [None]
  - GASTROINTESTINAL DISORDER [None]
  - RADIATION INJURY [None]
  - RECTAL CANCER [None]
